FAERS Safety Report 6166581-5 (Version None)
Quarter: 2009Q2

REPORT INFORMATION
  Report Type: 
  Country: None (occurrence: None)
  Receive Date: 20090422
  Receipt Date: 20090212
  Transmission Date: 20091009
  Serious: Yes (Disabling)
  Sender: FDA-Public Use
  Company Number: 1-20090212

PATIENT
  Age: 57 Year
  Sex: Male
  Weight: 86.1834 kg

DRUGS (5)
  1. CHLORHEXIDINE GLUCONATE [Suspect]
     Indication: PREOPERATIVE CARE
     Dosage: ONE TIME, OPTHALMIC
     Route: 047
     Dates: start: 20090109
  2. ... [Suspect]
  3. FAMOTIDINE [Concomitant]
  4. DEXAMETHASONE TAB [Concomitant]
  5. LEVITIACAM [Concomitant]

REACTIONS (1)
  - CORNEAL DISORDER [None]
